FAERS Safety Report 13819086 (Version 1)
Quarter: 2017Q3

REPORT INFORMATION
  Report Type: Report from Study
  Country: US (occurrence: US)
  Receive Date: 20170731
  Receipt Date: 20170731
  Transmission Date: 20171127
  Serious: No
  Sender: FDA-Public Use
  Company Number: US-EXELIXIS-CABO-17009060

PATIENT
  Sex: Male

DRUGS (12)
  1. METOPROLOL. [Concomitant]
     Active Substance: METOPROLOL
  2. ASPIRIN. [Concomitant]
     Active Substance: ASPIRIN
  3. MULTIVITAMINS [Concomitant]
     Active Substance: VITAMINS
  4. LISINOPRIL. [Concomitant]
     Active Substance: LISINOPRIL
  5. OMEPRAZOLE. [Concomitant]
     Active Substance: OMEPRAZOLE
  6. CABOMETYX [Suspect]
     Active Substance: CABOZANTINIB S-MALATE
     Indication: RENAL CANCER
     Dosage: 40 MG, QD
     Route: 048
  7. DIPHENOXYLATE [Concomitant]
     Active Substance: DIPHENOXYLATE
  8. ATORVASTATIN CALCIUM. [Concomitant]
     Active Substance: ATORVASTATIN CALCIUM
  9. LEVOTHYROXIN [Concomitant]
     Active Substance: LEVOTHYROXINE
  10. ALOGLIPTIN BENZOATE [Concomitant]
     Active Substance: ALOGLIPTIN BENZOATE
  11. INSULIN HUMAN [Concomitant]
     Active Substance: INSULIN HUMAN
  12. CELECOXIB. [Concomitant]
     Active Substance: CELECOXIB

REACTIONS (2)
  - Laboratory test abnormal [Unknown]
  - Renal impairment [Unknown]
